FAERS Safety Report 19762583 (Version 4)
Quarter: 2021Q3

REPORT INFORMATION
  Report Type: Report from Study
  Country: US (occurrence: US)
  Receive Date: 20210830
  Receipt Date: 20210927
  Transmission Date: 20211014
  Serious: Yes (Hospitalization, Other)
  Sender: FDA-Public Use
  Company Number: US-CLOVIS ONCOLOGY-CLO-2021-001097

PATIENT
  Age: 57 Year
  Sex: Female

DRUGS (3)
  1. RUBRACA [Suspect]
     Active Substance: RUCAPARIB CAMSYLATE
     Indication: OVARIAN CANCER
  2. RUBRACA [Suspect]
     Active Substance: RUCAPARIB CAMSYLATE
     Indication: MALIGNANT PERITONEAL NEOPLASM
     Dosage: 500 MILLIGRAM, BID
     Route: 048
     Dates: start: 20210702, end: 20210826
  3. RUBRACA [Suspect]
     Active Substance: RUCAPARIB CAMSYLATE
     Indication: OVARIAN CANCER
     Dosage: 500 MILLIGRAM, BID
     Route: 048
     Dates: start: 20210630, end: 202108

REACTIONS (14)
  - Small intestinal obstruction [Unknown]
  - Arthritis [Recovering/Resolving]
  - Sneezing [Recovering/Resolving]
  - Urinary tract infection [Unknown]
  - Loss of consciousness [Unknown]
  - Arthralgia [Recovering/Resolving]
  - Laboratory test abnormal [Unknown]
  - Nausea [Recovered/Resolved]
  - Product dose omission in error [Unknown]
  - Vomiting [Unknown]
  - Malignant neoplasm progression [Unknown]
  - Abdominal tenderness [Recovering/Resolving]
  - Fatigue [Not Recovered/Not Resolved]
  - Gastroenteritis [Recovering/Resolving]

NARRATIVE: CASE EVENT DATE: 202107
